FAERS Safety Report 10028129 (Version 1)
Quarter: 2014Q1

REPORT INFORMATION
  Report Type: Spontaneous
  Country: US (occurrence: US)
  Receive Date: 20140321
  Receipt Date: 20140321
  Transmission Date: 20141002
  Serious: No
  Sender: FDA-Public Use
  Company Number: US-009507513-1403USA000884

PATIENT
  Sex: Female
  Weight: 77.98 kg

DRUGS (1)
  1. MIRALAX [Suspect]
     Indication: IRRITABLE BOWEL SYNDROME
     Dosage: UNK, PRN
     Route: 048

REACTIONS (2)
  - Off label use [Unknown]
  - Product quality issue [Unknown]
